FAERS Safety Report 8785633 (Version 3)
Quarter: 2012Q4

REPORT INFORMATION
  Report Type: 
  Country: US (occurrence: US)
  Receive Date: 20120914
  Receipt Date: 20121026
  Transmission Date: 20130627
  Serious: Yes (Death, Hospitalization)
  Sender: FDA-Public Use
  Company Number: US-CELGENEUS-163-21880-12091186

PATIENT
  Age: 85 None
  Sex: Male
  Weight: 63 kg

DRUGS (24)
  1. REVLIMID [Suspect]
     Indication: MYELODYSPLASTIC SYNDROME
     Dosage: 5 Milligram
     Route: 048
     Dates: start: 20120810
  2. FLUIDS [Concomitant]
     Indication: WEAKNESS
     Route: 041
     Dates: start: 201209
  3. FLUIDS [Concomitant]
     Indication: LETHARGY
  4. FLUIDS [Concomitant]
     Indication: DEHYDRATION
  5. FLUIDS [Concomitant]
     Indication: ANOREXIA
  6. PROCRIT [Concomitant]
     Indication: DRUG USE FOR UNKNOWN INDICATION
     Dosage: 60,000 units
     Route: 065
     Dates: start: 20120731, end: 20120731
  7. PROCRIT [Concomitant]
     Dosage: 60,000 units
     Route: 065
     Dates: start: 20120808, end: 20120808
  8. PROCRIT [Concomitant]
     Dosage: 60,000 units
     Route: 065
     Dates: start: 20120814, end: 20120814
  9. PROCRIT [Concomitant]
     Dosage: 60,000 units
     Route: 065
     Dates: start: 20120817, end: 20120817
  10. PROCRIT [Concomitant]
     Dosage: 60,000 units
     Route: 065
     Dates: start: 20120821, end: 20120821
  11. PROCRIT [Concomitant]
     Dosage: 60,000 units
     Route: 065
     Dates: start: 20120824, end: 20120824
  12. PROCRIT [Concomitant]
     Dosage: 60,000 units
     Route: 065
     Dates: start: 20120831, end: 20120831
  13. PROCRIT [Concomitant]
     Dosage: 60,000 units
     Route: 065
     Dates: start: 20120904, end: 20120904
  14. LEVOTHYROXINE SODIUM [Concomitant]
     Indication: HYPOTHYROIDISM
     Dosage: 50 Microgram
     Route: 065
  15. MULTIVITAMINS [Concomitant]
     Indication: DRUG USE FOR UNKNOWN INDICATION
     Dosage: 1 Tablet
     Route: 048
  16. PLAVIX [Concomitant]
     Indication: DRUG USE FOR UNKNOWN INDICATION
     Dosage: 75 Milligram
     Route: 065
  17. TERAZOSIN HCL [Concomitant]
     Indication: DRUG USE FOR UNKNOWN INDICATION
     Dosage: 4 Milligram
     Route: 048
  18. OMEPRAZOLE [Concomitant]
     Indication: GERD
     Dosage: 20 Milligram
     Route: 065
  19. OMEPRAZOLE [Concomitant]
     Dosage: 20 Milligram
     Route: 041
     Dates: start: 201209
  20. ABILIFY [Concomitant]
     Indication: DRUG USE FOR UNKNOWN INDICATION
     Dosage: 10 Milligram
     Route: 065
  21. NORMAL SALINE [Concomitant]
     Indication: WEAKNESS
     Dosage: 150 milliliter
     Route: 041
     Dates: start: 201209
  22. NORMAL SALINE [Concomitant]
     Indication: LETHARGY
  23. NORMAL SALINE [Concomitant]
     Indication: DEHYDRATION
  24. NORMAL SALINE [Concomitant]
     Indication: ANOREXIA

REACTIONS (5)
  - Cardio-respiratory arrest [Fatal]
  - Anaemia [Recovered/Resolved]
  - Clostridium difficile infection [Recovering/Resolving]
  - Neutropenia [Not Recovered/Not Resolved]
  - Platelet count decreased [Not Recovered/Not Resolved]
